FAERS Safety Report 6031598-8 (Version None)
Quarter: 2009Q1

REPORT INFORMATION
  Report Type: 
  Country: None (occurrence: None)
  Receive Date: 20090108
  Receipt Date: 20081230
  Transmission Date: 20090719
  Serious: Yes (Hospitalization)
  Sender: FDA-Public Use
  Company Number: US-AVENTIS-200910006GDDC

PATIENT
  Age: 63 Year
  Sex: Male
  Weight: 131.3 kg

DRUGS (5)
  1. TAXOTERE [Suspect]
     Route: 042
     Dates: start: 20081218, end: 20081218
  2. PREDNISONE [Suspect]
     Route: 048
     Dates: start: 20081218, end: 20081225
  3. GOSERELIN [Concomitant]
     Dosage: DOSE: UNK
     Dates: start: 20030901
  4. BICALUTAMIDE [Concomitant]
     Dosage: DOSE: UNK
     Dates: end: 20081117
  5. RADIATION [Concomitant]
     Dosage: DOSE: UNK
     Dates: start: 20081101

REACTIONS (3)
  - ASPARTATE AMINOTRANSFERASE INCREASED [None]
  - BLOOD CREATINE PHOSPHOKINASE INCREASED [None]
  - BLOOD CREATININE INCREASED [None]
